FAERS Safety Report 13972998 (Version 4)
Quarter: 2018Q1

REPORT INFORMATION
  Report Type: Spontaneous
  Country: US (occurrence: US)
  Receive Date: 20170914
  Receipt Date: 20180111
  Transmission Date: 20180508
  Serious: Yes (Hospitalization, Other)
  Sender: FDA-Public Use
  Company Number: US-009507513-1709USA007408

PATIENT
  Sex: Female
  Weight: 78.46 kg

DRUGS (2)
  1. NUVARING [Suspect]
     Active Substance: ETHINYL ESTRADIOL\ETONOGESTREL
     Dosage: 1 RING 3 WEEKS IN PLACE, 1 WEEK RING FREE
     Route: 067
     Dates: start: 201508, end: 20151005
  2. NUVARING [Suspect]
     Active Substance: ETHINYL ESTRADIOL\ETONOGESTREL
     Indication: CONTRACEPTION
     Dosage: 1 RING 3 WEEKS IN PLACE, 1 WEEK RING FREE
     Route: 067
     Dates: start: 201102, end: 20110719

REACTIONS (31)
  - Focal nodular hyperplasia [Unknown]
  - Drug hypersensitivity [Unknown]
  - Bronchitis [Unknown]
  - Hypotension [Recovered/Resolved]
  - Irritable bowel syndrome [Unknown]
  - Histoplasmosis [Unknown]
  - Costochondritis [Unknown]
  - Pain [Unknown]
  - Post-traumatic stress disorder [Unknown]
  - Viral infection [Unknown]
  - Pleuritic pain [Unknown]
  - Attention deficit/hyperactivity disorder [Unknown]
  - Abdominal pain [Unknown]
  - Swelling [Unknown]
  - Anxiety disorder [Unknown]
  - Constipation [Unknown]
  - Depression [Unknown]
  - Libido decreased [Recovered/Resolved]
  - Persistent depressive disorder [Unknown]
  - Blood disorder [Unknown]
  - Bronchitis [Unknown]
  - Diarrhoea [Unknown]
  - Hilar lymphadenopathy [Unknown]
  - Musculoskeletal pain [Unknown]
  - Pharyngitis [Unknown]
  - Pulmonary embolism [Recovered/Resolved]
  - Uterine haemorrhage [Unknown]
  - Headache [Unknown]
  - Hypotension [Unknown]
  - Otitis media [Unknown]
  - Fatigue [Unknown]

NARRATIVE: CASE EVENT DATE: 20110202
